FAERS Safety Report 5930972-5 (Version None)
Quarter: 2008Q4

REPORT INFORMATION
  Report Type: 
  Country: None (occurrence: None)
  Receive Date: 20081022
  Receipt Date: 20081014
  Transmission Date: 20090506
  Serious: Yes (Hospitalization)
  Sender: FDA-Public Use
  Company Number: ADE2008-0346

PATIENT
  Age: 56 Year
  Sex: Male

DRUGS (3)
  1. SIMVASTATIN [Suspect]
     Indication: HYPERCHOLESTEROLAEMIA
     Dosage: 40MG - DAILY - PO
     Route: 048
     Dates: start: 20050923
  2. LOSARTAN POTASSIUM 50 MG [Concomitant]
  3. ASPIRIN [Concomitant]

REACTIONS (5)
  - ASTHENIA [None]
  - CEREBRAL ISCHAEMIA [None]
  - DEMYELINATION [None]
  - HYPOAESTHESIA [None]
  - SPINAL CORD COMPRESSION [None]
